FAERS Safety Report 7315181-X (Version None)
Quarter: 2011Q1

REPORT INFORMATION
  Report Type: 
  Country: None (occurrence: None)
  Receive Date: 20110225
  Receipt Date: 20110217
  Transmission Date: 20110831
  Serious: Yes (Hospitalization)
  Sender: FDA-Public Use
  Company Number: ES-AMGEN-ESPSP2011009563

PATIENT
  Age: 46 Year
  Sex: Male

DRUGS (11)
  1. MINOXIDIL [Concomitant]
     Indication: HYPERTENSION
     Dosage: 10 MG, QD
     Dates: start: 20090820
  2. ZEMPLAR [Suspect]
     Dosage: UNK
  3. CINACALCET HYDROCHLORIDE [Suspect]
     Indication: HYPERPARATHYROIDISM SECONDARY
     Dosage: 30 MG, QD
     Dates: start: 20100714, end: 20110110
  4. IRBESARTAN [Concomitant]
     Indication: HYPERTENSION
     Dosage: 150 MG, QD
     Dates: start: 20091027, end: 20100803
  5. EPOGEN [Concomitant]
     Indication: ANAEMIA
     Dosage: 5000 IU, 3 TIMES/WK
     Dates: start: 20060101
  6. ALFACALCIDOL [Suspect]
     Indication: HYPERPARATHYROIDISM SECONDARY
     Dosage: 0.25 A?G, QD
     Route: 048
     Dates: start: 20100714, end: 20110110
  7. DEFLAZACORT [Concomitant]
     Indication: RHEUMATOID ARTHRITIS
     Dosage: 3 MG, Q12H
     Dates: start: 20091127
  8. LORAZEPAM [Concomitant]
     Indication: INSOMNIA
     Dosage: 1 MG, QD
     Dates: start: 20100123
  9. SACCHARATED IRON OXIDE [Concomitant]
     Indication: ANAEMIA
     Dosage: 100 MG, QWK
     Dates: start: 20091027
  10. ATENOLOL [Concomitant]
     Indication: ATRIAL FIBRILLATION
     Dosage: 12.5 MG, QD
     Dates: start: 20090507
  11. OMEPRAZOLE [Concomitant]
     Indication: DYSPEPSIA
     Dosage: 20 MG, UNK
     Dates: start: 20090506

REACTIONS (2)
  - PNEUMONIA [None]
  - CONVULSION [None]
